FAERS Safety Report 23358379 (Version 1)
Quarter: 2024Q1

REPORT INFORMATION
  Report Type: Spontaneous
  Country: DK (occurrence: DK)
  Receive Date: 20240102
  Receipt Date: 20240102
  Transmission Date: 20240410
  Serious: Yes (Hospitalization)
  Sender: FDA-Public Use
  Company Number: None

PATIENT
  Age: 56 Year
  Sex: Female
  Weight: 74 kg

DRUGS (6)
  1. ZOLEDRONIC ACID [Suspect]
     Active Substance: ZOLEDRONIC ACID
     Indication: Osteoporosis
     Dosage: STRENGTH: 4MG/5ML?ROUTE OF ADMIN: INTRAVENOUS?FORM OF ADMIN: CONCENTRATE FOR SOLUTION FOR INFUSION
     Route: 042
     Dates: end: 20231121
  2. VENTOLIN [Concomitant]
     Active Substance: ALBUTEROL SULFATE
     Indication: Asthma
     Dates: start: 2020
  3. ACETAMINOPHEN [Concomitant]
     Active Substance: ACETAMINOPHEN
     Indication: Pain
     Dates: start: 2020
  4. CETIRIZINE HYDROCHLORIDE [Concomitant]
     Active Substance: CETIRIZINE HYDROCHLORIDE
     Indication: Seasonal allergy
     Dates: start: 2020
  5. EMADINE [Concomitant]
     Active Substance: EMEDASTINE DIFUMARATE
     Indication: Conjunctivitis allergic
     Dates: start: 2020
  6. VAGIFEM [Concomitant]
     Active Substance: ESTRADIOL
     Indication: Hormone therapy
     Dates: start: 2022

REACTIONS (3)
  - Influenza like illness [Unknown]
  - Eye pain [Unknown]
  - Cellulitis orbital [Unknown]

NARRATIVE: CASE EVENT DATE: 20231101
